FAERS Safety Report 10498757 (Version 3)
Quarter: 2014Q4

REPORT INFORMATION
  Report Type: Spontaneous
  Country: US (occurrence: US)
  Receive Date: 20141006
  Receipt Date: 20141120
  Transmission Date: 20150528
  Serious: Yes (Other)
  Sender: FDA-Public Use
  Company Number: US-ELI_LILLY_AND_COMPANY-US201409009659

PATIENT
  Sex: Male

DRUGS (13)
  1. HUMALOG [Suspect]
     Active Substance: INSULIN LISPRO
     Indication: TYPE 2 DIABETES MELLITUS
     Dosage: UNK, TID
     Route: 065
  2. AMLODIPINE BESYLATE. [Concomitant]
     Active Substance: AMLODIPINE BESYLATE
  3. LANTUS [Concomitant]
     Active Substance: INSULIN GLARGINE
  4. OMEPRAZOLE. [Concomitant]
     Active Substance: OMEPRAZOLE
  5. ATORVASTATIN [Concomitant]
     Active Substance: ATORVASTATIN
  6. LOSARTAN POTASSIUM. [Concomitant]
     Active Substance: LOSARTAN POTASSIUM
  7. VITAMIN B1 [Concomitant]
     Active Substance: THIAMINE HYDROCHLORIDE
  8. METOPROLOL TARTRATE. [Concomitant]
     Active Substance: METOPROLOL TARTRATE
  9. METFORMIN [Concomitant]
     Active Substance: METFORMIN HYDROCHLORIDE
  10. BAYER ASPIRIN [Concomitant]
     Active Substance: ASPIRIN
  11. FISH OIL [Concomitant]
     Active Substance: FISH OIL
  12. RANEXA [Concomitant]
     Active Substance: RANOLAZINE
  13. GABAPENTIN. [Concomitant]
     Active Substance: GABAPENTIN

REACTIONS (6)
  - Blood glucose decreased [Unknown]
  - Dyslipidaemia [Unknown]
  - Blood glucose abnormal [Unknown]
  - Headache [Unknown]
  - Cerebrovascular accident [Recovering/Resolving]
  - Dyspnoea [Unknown]
